FAERS Safety Report 25736504 (Version 2)
Quarter: 2025Q3

REPORT INFORMATION
  Report Type: Spontaneous
  Country: EU (occurrence: EU)
  Receive Date: 20250828
  Receipt Date: 20250915
  Transmission Date: 20251020
  Serious: Yes (Death, Other)
  Sender: TEVA
  Company Number: EU-TEVA-VS-3364679

PATIENT
  Age: 22 Year
  Sex: Male

DRUGS (4)
  1. QUETIAPINE [Suspect]
     Active Substance: QUETIAPINE
     Indication: Major depression
     Route: 065
  2. CLOZAPINE [Suspect]
     Active Substance: CLOZAPINE
     Indication: Antipsychotic therapy
     Route: 048
  3. PAROXETINE [Suspect]
     Active Substance: PAROXETINE
     Indication: Completed suicide
     Route: 048
  4. ALPRAZOLAM [Suspect]
     Active Substance: ALPRAZOLAM
     Indication: Panic disorder
     Route: 065

REACTIONS (10)
  - Ventricular arrhythmia [Fatal]
  - Serotonin syndrome [Fatal]
  - Completed suicide [Fatal]
  - Drug interaction [Fatal]
  - Bladder dilatation [Unknown]
  - Intentional overdose [Fatal]
  - Brain oedema [Unknown]
  - Toxicity to various agents [Fatal]
  - Pulmonary congestion [Unknown]
  - Pulmonary oedema [Unknown]
